FAERS Safety Report 5195791-9 (Version None)
Quarter: 2007Q1

REPORT INFORMATION
  Report Type: 
  Country: None (occurrence: None)
  Receive Date: 20070102
  Receipt Date: 20061220
  Transmission Date: 20070707
  Serious: Yes (Hospitalization)
  Sender: FDA-Public Use
  Company Number: US-AMGEN-US202542

PATIENT
  Sex: Female

DRUGS (7)
  1. ENBREL [Suspect]
     Indication: RHEUMATOID ARTHRITIS
     Route: 058
     Dates: start: 20060808, end: 20061009
  2. ARAVA [Concomitant]
     Route: 048
     Dates: start: 20060901, end: 20061013
  3. PREDNISOLONE [Concomitant]
     Route: 048
     Dates: start: 20061017, end: 20061127
  4. CELEBREX [Concomitant]
     Route: 048
  5. NEXIUM [Concomitant]
     Route: 048
  6. FENTANYL [Concomitant]
     Route: 062
  7. UNSPECIFIED NON-STEROIDAL ANTI-INFLAMMATORY AGENT [Concomitant]
     Route: 054

REACTIONS (5)
  - CELLULITIS [None]
  - FATIGUE [None]
  - HAEMATOCHEZIA [None]
  - PYREXIA [None]
  - RECTAL FISSURE [None]
